FAERS Safety Report 9387426 (Version 1)
Quarter: 2013Q3

REPORT INFORMATION
  Report Type: Spontaneous
  Country: US (occurrence: None)
  Receive Date: 20130702
  Receipt Date: 20130702
  Transmission Date: 20140515
  Serious: Yes (Hospitalization)
  Sender: FDA-Public Use
  Company Number: UTC-034747

PATIENT
  Age: 53 Year
  Sex: Male
  Weight: 74.54 kg

DRUGS (2)
  1. REMODULIN (10 MILLIGRAM/MILLILITERS, INJECTION FOR INFUSION) (TREPROSTINIL SODIUM) [Suspect]
     Indication: COR PULMONALE CHRONIC
     Dosage: 74.88 UG/KG (0.052 UG/KG,L IN 1 MIN),SUBCUTANEOUS
     Route: 058
     Dates: start: 20130109
  2. ADCIRCA (TADALAFIL) [Concomitant]

REACTIONS (2)
  - Headache [None]
  - Pain in extremity [None]
